FAERS Safety Report 7419041-5 (Version None)
Quarter: 2011Q2

REPORT INFORMATION
  Report Type: 
  Country: None (occurrence: None)
  Receive Date: 20110415
  Receipt Date: 20110415
  Transmission Date: 20111010
  Serious: Yes (Other)
  Sender: FDA-Public Use
  Company Number: SE-PFIZER INC-2010061197

PATIENT
  Sex: Female

DRUGS (8)
  1. XANOR [Suspect]
     Dosage: 0.5 MG, AS NEEDED
  2. IRON [Concomitant]
     Dosage: UNK
  3. AZILECT [Concomitant]
     Dosage: UNK
  4. PREDNISOLON [Concomitant]
     Dosage: UNK
  5. FOLACIN [Concomitant]
     Dosage: UNK
  6. XANOR DEPOT [Suspect]
     Dosage: 1 MG, 3X/DAY
  7. XANOR [Suspect]
     Dosage: 2 MG, 2X/DAY
     Dates: start: 19870101
  8. MADOPARK [Concomitant]
     Dosage: UNK

REACTIONS (8)
  - MEMORY IMPAIRMENT [None]
  - NAUSEA [None]
  - HEADACHE [None]
  - DRUG INTOLERANCE [None]
  - DRUG DEPENDENCE [None]
  - ASTHENIA [None]
  - PAIN [None]
  - PARKINSONISM [None]
